FAERS Safety Report 10708259 (Version 1)
Quarter: 2015Q1

REPORT INFORMATION
  Report Type: Spontaneous
  Country: US (occurrence: US)
  Receive Date: 20150113
  Receipt Date: 20150113
  Transmission Date: 20150721
  Serious: Yes (Death)
  Sender: FDA-Public Use
  Company Number: US-PFIZER INC-2015007105

PATIENT
  Age: 30 Year
  Sex: Male

DRUGS (5)
  1. HYDROCODONE [Suspect]
     Active Substance: HYDROCODONE
     Dosage: UNK
  2. HEROIN [Suspect]
     Active Substance: DIACETYLMORPHINE
     Dosage: UNK
  3. NICOTINE. [Suspect]
     Active Substance: NICOTINE
     Dosage: UNK
  4. CAFFEINE. [Suspect]
     Active Substance: CAFFEINE
     Dosage: UNK
  5. DIPHENHYDRAMINE [Suspect]
     Active Substance: DIPHENHYDRAMINE
     Dosage: UNK

REACTIONS (3)
  - Cardiac arrest [Fatal]
  - Respiratory arrest [Fatal]
  - Drug abuse [Fatal]

NARRATIVE: CASE EVENT DATE: 2013
